FAERS Safety Report 4507844-6 (Version None)
Quarter: 2004Q4

REPORT INFORMATION
  Report Type: 
  Country: None (occurrence: None)
  Receive Date: 20041118
  Receipt Date: 20041102
  Transmission Date: 20050328
  Serious: Yes (Hospitalization)
  Sender: FDA-Public Use
  Company Number: A-CH2004-07983

PATIENT
  Age: 78 Year
  Sex: Female

DRUGS (8)
  1. TRACLEER [Suspect]
     Indication: PULMONARY HYPERTENSION
     Dosage: 62.5 MG, BID, ORAL
     Route: 048
     Dates: start: 20040918, end: 20041001
  2. TRACLEER [Suspect]
     Indication: PULMONARY HYPERTENSION
     Dosage: 62.5 MG, BID, ORAL
     Route: 048
     Dates: start: 20041016, end: 20041101
  3. DILTIAZEM HYDROCHLORIDE [Suspect]
     Dates: start: 20040918, end: 20041001
  4. PREVISCAN      (FLUINDIONE) [Suspect]
     Dates: start: 20040918, end: 20041001
  5. LASIX [Concomitant]
  6. CORVASAL           (MOLSIDOMINE) [Concomitant]
  7. ATORVASTATIN CALCIUM [Concomitant]
  8. TEGRETOL [Concomitant]

REACTIONS (6)
  - DERMATITIS EXFOLIATIVE [None]
  - HYPERSENSITIVITY [None]
  - IMMUNE SYSTEM DISORDER [None]
  - PRURITUS [None]
  - RASH [None]
  - RENAL FAILURE ACUTE [None]
